FAERS Safety Report 9019771 (Version 1)
Quarter: 2013Q1

REPORT INFORMATION
  Report Type: Spontaneous
  Country: DE (occurrence: DE)
  Receive Date: 20130118
  Receipt Date: 20130118
  Transmission Date: 20140127
  Serious: Yes (Other)
  Sender: FDA-Public Use
  Company Number: DE-ROCHE-1180909

PATIENT
  Sex: Female

DRUGS (3)
  1. PEGASYS [Suspect]
     Indication: CHRONIC HEPATITIS C
     Route: 065
     Dates: start: 200209
  2. REBETOL [Concomitant]
     Indication: CHRONIC HEPATITIS C
     Route: 065
     Dates: start: 200209
  3. INCIVO [Concomitant]
     Indication: CHRONIC HEPATITIS C
     Route: 065
     Dates: start: 200209

REACTIONS (2)
  - Granuloma [Recovered/Resolved]
  - Vogt-Koyanagi-Harada syndrome [Unknown]
